FAERS Safety Report 7869288 (Version 4)
Quarter: 2013Q1

REPORT INFORMATION
  Report Type: Spontaneous
  Country: US (occurrence: US)
  Receive Date: 20110324
  Receipt Date: 20130214
  Transmission Date: 20140127
  Serious: Yes (Hospitalization)
  Sender: FDA-Public Use
  Company Number: US-BAYER-2011-023390

PATIENT
  Age: 17 Year
  Sex: Female
  Weight: 52.61 kg

DRUGS (11)
  1. URISED [Concomitant]
     Dosage: UNK
     Dates: start: 20070716, end: 20070917
  2. BENZACLIN [Concomitant]
     Dosage: UNK
     Dates: start: 20061220, end: 20090714
  3. BACTROBAN [Concomitant]
     Dosage: UNK
     Dates: start: 20070320, end: 20070917
  4. PATANOL [Concomitant]
     Dosage: UNK
     Dates: start: 20070809, end: 20070917
  5. TRIAMCINOLONE [Concomitant]
     Dosage: UNK
     Dates: start: 20061107, end: 20070917
  6. ZYRTEC [Concomitant]
     Dosage: UNK
     Dates: start: 20020917, end: 20070917
  7. PREDNISONE [Concomitant]
     Dosage: UNK
     Dates: start: 20071012
  8. HYOSCYAMINE [Concomitant]
     Dosage: UNK
     Dates: start: 20021011, end: 20080221
  9. YAZ [Suspect]
     Dosage: UNK
     Dates: start: 20070423, end: 200705
  10. TIZANIDINE [Concomitant]
     Dosage: UNK
     Dates: start: 20070716, end: 20071031
  11. DICLOFENAC [Concomitant]
     Dosage: UNK
     Dates: start: 20061020, end: 20070917

REACTIONS (3)
  - Cholecystectomy [None]
  - Emotional distress [None]
  - Cholecystitis [None]
